FAERS Safety Report 8580646-X (Version None)
Quarter: 2012Q3

REPORT INFORMATION
  Report Type: 
  Country: None (occurrence: None)
  Receive Date: 20120809
  Receipt Date: 20120801
  Transmission Date: 20120928
  Serious: Yes (Other)
  Sender: FDA-Public Use
  Company Number: BR-BIOGENIDEC-2012BI005807

PATIENT
  Age: 30 Year
  Sex: Female
  Weight: 71 kg

DRUGS (3)
  1. NATELE (POLYVITAMINS) [Concomitant]
     Indication: PREGNANCY
     Route: 048
  2. NORIPURUM (FERRIC HYDROXIDE) [Concomitant]
     Indication: PREGNANCY
     Route: 048
  3. AVONEX [Suspect]
     Indication: MULTIPLE SCLEROSIS
     Route: 030
     Dates: start: 20100101, end: 20111001

REACTIONS (1)
  - CAESAREAN SECTION [None]
